FAERS Safety Report 8405974-X (Version None)
Quarter: 2012Q2

REPORT INFORMATION
  Report Type: 
  Country: None (occurrence: None)
  Receive Date: 20120604
  Receipt Date: 20120524
  Transmission Date: 20120825
  Serious: Yes (Other)
  Sender: FDA-Public Use
  Company Number: CA-JNJFOC-20120518920

PATIENT
  Sex: Female
  Weight: 82 kg

DRUGS (4)
  1. REMICADE [Suspect]
     Indication: CROHN'S DISEASE
     Route: 042
     Dates: start: 20100419
  2. PANTOPRAZOLE [Concomitant]
     Route: 048
  3. DOMPERIDONE [Concomitant]
     Route: 065
  4. PANTOPRAZOLE SODIUM [Concomitant]
     Route: 065

REACTIONS (2)
  - MIGRAINE [None]
  - HEADACHE [None]
